FAERS Safety Report 20631527 (Version 3)
Quarter: 2022Q4

REPORT INFORMATION
  Report Type: Spontaneous
  Country: US (occurrence: US)
  Receive Date: 20220324
  Receipt Date: 20221014
  Transmission Date: 20230113
  Serious: Yes (Other)
  Sender: FDA-Public Use
  Company Number: US-MYLANLABS-2022M1021618

PATIENT
  Age: 4 Year
  Sex: Female

DRUGS (6)
  1. OCTREOTIDE [Suspect]
     Active Substance: OCTREOTIDE
     Indication: Chylothorax
     Dosage: UNK
     Route: 065
  2. SIROLIMUS [Suspect]
     Active Substance: SIROLIMUS
     Indication: Chylothorax
     Dosage: UNK
     Route: 065
  3. TRAMETINIB [Concomitant]
     Active Substance: TRAMETINIB
     Indication: Chylothorax
     Dosage: 0.25 MILLIGRAM (SHE STARTED ON OFF-LABEL ORAL TRAMETINIB TABLET 0.25 MG...
     Route: 048
  4. TRAMETINIB [Concomitant]
     Active Substance: TRAMETINIB
     Dosage: 0.25 MILLIGRAM (EVERY 36 HRS)/SHE STARTED ON OFF-LABEL ORAL TRAMETINIB TABLET 0.25 MG...
     Route: 048
  5. TRAMETINIB [Concomitant]
     Active Substance: TRAMETINIB
     Dosage: 0.25 MILLIGRAM, QD (SHE STARTED ON OFF-LABEL ORAL TRAMETINIB TABLET 0.25 MG...
     Route: 048
  6. TRAMETINIB [Concomitant]
     Active Substance: TRAMETINIB
     Indication: Chylothorax
     Dosage: 0.018 MILLIGRAM/KILOGRAM, QD
     Route: 065

REACTIONS (2)
  - Drug ineffective for unapproved indication [Unknown]
  - Off label use [Unknown]
